FAERS Safety Report 8225682-8 (Version None)
Quarter: 2012Q1

REPORT INFORMATION
  Report Type: 
  Country: None (occurrence: None)
  Receive Date: 20120321
  Receipt Date: 20120312
  Transmission Date: 20120608
  Serious: Yes (Hospitalization, Other)
  Sender: FDA-Public Use
  Company Number: US-ELI_LILLY_AND_COMPANY-US201006006069

PATIENT
  Sex: Female
  Weight: 49.433 kg

DRUGS (30)
  1. FORTEO [Suspect]
     Dosage: 20 UG, DAILY (1/D)
     Route: 065
  2. FORTEO [Suspect]
     Dosage: 20 UG, QD
  3. CALCIUM CARBONATE [Concomitant]
     Dosage: UNK, 2/D
  4. MULTI-VITAMIN [Concomitant]
     Dosage: UNK, DAILY (1/D)
  5. MONOKET [Concomitant]
  6. SYNTHROID [Concomitant]
     Dosage: UNK, DAILY (1/D)
  7. IRON [Concomitant]
  8. TYLENOL ARTHRITIS [Concomitant]
  9. FORTEO [Suspect]
     Dosage: 20 UG, QD
     Route: 065
  10. FORTEO [Suspect]
     Dosage: 20 UG, QD
  11. FERROUS SULFATE TAB [Concomitant]
  12. ASPIRIN [Concomitant]
  13. PLAVIX [Concomitant]
     Dosage: UNK, DAILY (1/D)
  14. PRAVACHOL [Concomitant]
  15. NITROGLYCERIN [Concomitant]
     Dosage: UNK, AS NEEDED
  16. COREG [Concomitant]
  17. AMBIEN [Concomitant]
  18. FORTEO [Suspect]
     Dosage: 20 UG, DAILY (1/D)
     Route: 065
  19. LEXAPRO [Concomitant]
  20. SUCRALFATE [Concomitant]
     Dosage: UNK, DAILY (1/D)
  21. FORTEO [Suspect]
     Indication: OSTEOPOROSIS
     Dosage: 20 UG, DAILY (1/D)
     Route: 065
  22. MYLANTA [Concomitant]
  23. VITAMIN D [Concomitant]
     Dosage: UNK, 2/D
  24. BENADRYL [Concomitant]
  25. FORTEO [Suspect]
     Dosage: 20 UG, QD
     Route: 065
  26. FORTEO [Suspect]
     Dosage: 20 UG, QD
     Route: 065
  27. FORTEO [Suspect]
     Dosage: 20 UG, QD
  28. ASPIRIN [Concomitant]
     Dosage: 325 MG, DAILY (1/D)
  29. CARVEDILOL [Concomitant]
  30. ZYLOPRIM [Concomitant]

REACTIONS (18)
  - CYSTITIS [None]
  - PAIN IN EXTREMITY [None]
  - DIZZINESS [None]
  - CORONARY ARTERY DISEASE [None]
  - BLADDER PROLAPSE [None]
  - HYSTERECTOMY [None]
  - CONTUSION [None]
  - LIMB INJURY [None]
  - DYSPEPSIA [None]
  - INJECTION SITE PAIN [None]
  - INJECTION SITE HAEMATOMA [None]
  - MYOCARDIAL INFARCTION [None]
  - CONSTIPATION [None]
  - DIARRHOEA [None]
  - GASTROOESOPHAGEAL REFLUX DISEASE [None]
  - FATIGUE [None]
  - MALAISE [None]
  - MUSCLE SPASMS [None]
